FAERS Safety Report 4577157-5 (Version None)
Quarter: 2005Q1

REPORT INFORMATION
  Report Type: 
  Country: None (occurrence: None)
  Receive Date: 20050210
  Receipt Date: 20050203
  Transmission Date: 20050727
  Serious: Yes (Disabling)
  Sender: FDA-Public Use
  Company Number: NL-ROCHE-394348

PATIENT
  Age: 42 Year
  Sex: Female

DRUGS (1)
  1. LARIAM [Suspect]
     Indication: MALARIA PROPHYLAXIS
     Dosage: DOSAGE REGIMEN REPORTED AS 1 TABLET WEEKLY
     Route: 048
     Dates: start: 20050114, end: 20050128

REACTIONS (6)
  - DISTURBANCE IN ATTENTION [None]
  - DIZZINESS [None]
  - PALPITATIONS [None]
  - PARAESTHESIA [None]
  - RESTLESSNESS [None]
  - SLEEP DISORDER [None]
